FAERS Safety Report 4469097-7 (Version None)
Quarter: 2004Q4

REPORT INFORMATION
  Report Type: 
  Country: None (occurrence: None)
  Receive Date: 20041001
  Receipt Date: 20040920
  Transmission Date: 20050328
  Serious: Yes (Hospitalization)
  Sender: FDA-Public Use
  Company Number: 200414586BCC

PATIENT
  Age: 82 Year
  Sex: Male
  Weight: 79.3795 kg

DRUGS (16)
  1. ALEVE [Suspect]
     Indication: FATIGUE
     Dosage: BID, ORAL
     Route: 048
     Dates: end: 20040616
  2. ASPIRIN [Suspect]
     Indication: FATIGUE
     Dosage: BID, ORAL
     Route: 048
     Dates: end: 20040616
  3. BEXTRA [Suspect]
     Dosage: 10 MG, QD, ORAL
     Route: 048
     Dates: start: 20040501, end: 20040616
  4. BEXTRA [Suspect]
     Dosage: 10 MG, QD, ORAL
     Route: 048
     Dates: start: 20040619
  5. LIPITOR [Concomitant]
  6. LANOXIN [Concomitant]
  7. PRINIVIL [Concomitant]
  8. DILTIAZEM [Concomitant]
  9. GLIPIZIDE [Concomitant]
  10. METFORMIN HCL [Concomitant]
  11. AVANDIA [Concomitant]
  12. MULTI-VITAMIN [Concomitant]
  13. DETROL [Concomitant]
  14. LASIX [Concomitant]
  15. GLUCOSAMINE/CHONDROITIN [Concomitant]
  16. CALCIUM [Concomitant]

REACTIONS (4)
  - BLOOD URINE [None]
  - CATHETER RELATED COMPLICATION [None]
  - THROMBOSIS [None]
  - VASCULAR INJURY [None]
